FAERS Safety Report 16529252 (Version 1)
Quarter: 2019Q3

REPORT INFORMATION
  Report Type: Spontaneous
  Country: US (occurrence: US)
  Receive Date: 20190704
  Receipt Date: 20190704
  Transmission Date: 20191004
  Serious: No
  Sender: FDA-Public Use
  Company Number: US-GW PHARMA-201906USGW1928

PATIENT

DRUGS (2)
  1. EPIDIOLEX [Suspect]
     Active Substance: CANNABIDIOL
     Indication: PARTIAL SEIZURES
     Dosage: 5.88 MG/KG, 200 MILLIGRAM, BID
     Route: 048
     Dates: start: 20190326
  2. EPIDIOLEX [Suspect]
     Active Substance: CANNABIDIOL
     Indication: EPILEPSY

REACTIONS (1)
  - Weight increased [Unknown]

NARRATIVE: CASE EVENT DATE: 20190510
